FAERS Safety Report 10642160 (Version 2)
Quarter: 2014Q4

REPORT INFORMATION
  Report Type: Report from Study
  Country: US (occurrence: US)
  Receive Date: 20141210
  Receipt Date: 20141217
  Transmission Date: 20150529
  Serious: Yes (Hospitalization)
  Sender: FDA-Public Use
  Company Number: US-MERCK-1412USA004039

PATIENT
  Age: 55 Year
  Sex: Male
  Weight: 73.8 kg

DRUGS (7)
  1. CYTARABINE. [Suspect]
     Active Substance: CYTARABINE
     Indication: ACUTE MYELOID LEUKAEMIA
     Dosage: 1500MG/M2/DAY CONTINUOUS IV INFUSION ON DAYS 4-7, INDUCTION AND RE-INDUCTION (CYCLE = 28 DAYS)
     Route: 042
     Dates: start: 20140921, end: 20140924
  2. IDARUBICIN [Suspect]
     Active Substance: IDARUBICIN
     Indication: ACUTE MYELOID LEUKAEMIA
     Dosage: 12 MG/M2, QD OVER 15 MIN ON DAYS 4-6,INDUCTION AND RE-INDUCTION (CYCLE = 28 DAYS)
     Route: 042
     Dates: start: 20140921, end: 20140923
  3. VORINOSTAT [Suspect]
     Active Substance: VORINOSTAT
     Dosage: 500 MG, TID ON DAYS 1-3, CONSOLIDATION (CYCLE= 28 DAYS, MAXIMUM 4 CYCLES)
     Route: 048
     Dates: start: 20141112, end: 20141114
  4. NEULASTA [Concomitant]
     Active Substance: PEGFILGRASTIM
     Dosage: UNK
     Dates: start: 20141119
  5. IDARUBICIN [Suspect]
     Active Substance: IDARUBICIN
     Dosage: 8 MG/M2, QD OVER 15 MIN ON DAYS 4-5, CONSOLIDATION (CYCLE= 28 DAYS, MAXIMUM 4 CYCLES)
     Route: 042
     Dates: start: 20141115, end: 20141116
  6. CYTARABINE. [Suspect]
     Active Substance: CYTARABINE
     Dosage: 750MG/M2/DAY CONTINUOUS IV INFUSION ON DAYS 4-6, CONSOLIDATION (CYCLE = 28 DAYS, MAXIMUM 4 CYCLES)
     Route: 042
     Dates: start: 20141115, end: 20141117
  7. VORINOSTAT [Suspect]
     Active Substance: VORINOSTAT
     Indication: ACUTE MYELOID LEUKAEMIA
     Dosage: 500 MG, TID ON DAYS 1-3,INDUCTION AND RE-INDUCTION (CYCLE = 28 DAYS)
     Route: 048
     Dates: start: 20140918, end: 20140920

REACTIONS (2)
  - Febrile neutropenia [Recovering/Resolving]
  - Pulmonary embolism [Recovering/Resolving]

NARRATIVE: CASE EVENT DATE: 20141126
